FAERS Safety Report 19216202 (Version 1)
Quarter: 2021Q2

REPORT INFORMATION
  Report Type: Spontaneous
  Country: US (occurrence: US)
  Receive Date: 20210504
  Receipt Date: 20210504
  Transmission Date: 20210717
  Serious: Yes (Other)
  Sender: FDA-Public Use
  Company Number: None

PATIENT
  Sex: Female

DRUGS (12)
  1. IMPERAZOLE [Concomitant]
  2. PROPRSNOLOL [Concomitant]
  3. LEVOTHYROXIN [Concomitant]
     Active Substance: LEVOTHYROXINE
  4. LIDOCAINE. [Concomitant]
     Active Substance: LIDOCAINE
  5. HYDROCO/APAP [Concomitant]
     Active Substance: ACETAMINOPHEN\HYDROCODONE
  6. KISQALI [Suspect]
     Active Substance: RIBOCICLIB
     Indication: NEOPLASM MALIGNANT
  7. OXYCONTIN [Concomitant]
     Active Substance: OXYCODONE HYDROCHLORIDE
  8. NIARCAN [Concomitant]
  9. OXYCODONE [Concomitant]
     Active Substance: OXYCODONE
  10. TAMOXIFEN [Concomitant]
     Active Substance: TAMOXIFEN
  11. TIZANIDINE. [Concomitant]
     Active Substance: TIZANIDINE
  12. VITAMIN D [Concomitant]
     Active Substance: VITAMIN D NOS

REACTIONS (2)
  - Lung cancer metastatic [None]
  - Hepatic cancer metastatic [None]
